FAERS Safety Report 6341422-1 (Version None)
Quarter: 2009Q3

REPORT INFORMATION
  Report Type: 
  Country: None (occurrence: None)
  Receive Date: 20090904
  Receipt Date: 20090826
  Transmission Date: 20100115
  Serious: Yes (Death, Other)
  Sender: FDA-Public Use
  Company Number: US-ELI_LILLY_AND_COMPANY-US200812003746

PATIENT
  Age: 23 Year
  Sex: Male

DRUGS (3)
  1. CYMBALTA [Suspect]
     Indication: PAIN
     Dosage: 60 MG, DAILY (1/D)
     Dates: start: 20080101
  2. ULTRAM [Concomitant]
     Dosage: UNK, UNK
     Dates: end: 20080101
  3. SKELAXIN [Concomitant]
     Indication: CHEST PAIN

REACTIONS (3)
  - ARTERIOSCLEROSIS [None]
  - CORONARY ARTERY DISEASE [None]
  - SEROTONIN SYNDROME [None]
